FAERS Safety Report 10582840 (Version 2)
Quarter: 2014Q4

REPORT INFORMATION
  Report Type: Report from Study
  Country: JP (occurrence: JP)
  Receive Date: 20141114
  Receipt Date: 20141114
  Transmission Date: 20150529
  Serious: Yes (Death, Hospitalization, Other)
  Sender: FDA-Public Use
  Company Number: JP-ROCHE-548418

PATIENT
  Age: 64 Year
  Sex: Female

DRUGS (41)
  1. RINDERON V [Suspect]
     Active Substance: BETAMETHASONE VALERATE
     Route: 048
     Dates: start: 20080201, end: 20080206
  2. CYANOCOBALAMIN. [Concomitant]
     Active Substance: CYANOCOBALAMIN
     Indication: PROPHYLAXIS
     Dosage: DOSAGE IS UNCERTAIN.
     Route: 065
     Dates: end: 20080214
  3. ASCORBIC ACID. [Concomitant]
     Active Substance: ASCORBIC ACID
     Indication: PROPHYLAXIS
     Dosage: DOSAGE IS UNCERTAIN.
     Route: 065
     Dates: end: 20080214
  4. SP [Concomitant]
     Dosage: ROUTE:OROPHARINGEAL; FORM: LOZENGE
     Route: 050
     Dates: start: 20080104, end: 20080214
  5. LANOCONAZOLE [Concomitant]
     Active Substance: LANOCONAZOLE
     Dosage: DRUG NAME RPTD AS : ASTAT:OINTMENT
     Route: 061
     Dates: start: 20080104, end: 20080111
  6. TRASTUZUMAB [Suspect]
     Active Substance: TRASTUZUMAB
     Indication: BREAST CANCER METASTATIC
     Route: 041
     Dates: start: 20071221, end: 20071221
  7. TAXOTERE [Suspect]
     Active Substance: DOCETAXEL
     Indication: BREAST CANCER METASTATIC
     Route: 041
     Dates: start: 20071221, end: 20080201
  8. RINDERON V [Suspect]
     Active Substance: BETAMETHASONE VALERATE
     Indication: PROPHYLAXIS OF NAUSEA AND VOMITING
     Route: 048
     Dates: start: 20071221, end: 20071226
  9. THIAMINE HYDROCHLORIDE. [Concomitant]
     Active Substance: THIAMINE HYDROCHLORIDE
     Indication: PROPHYLAXIS
     Dosage: DOSAGE IS UNCERTAIN.
     Route: 065
     Dates: end: 20080214
  10. COLD MEDICATION NOS [Concomitant]
     Dosage: DOSE ADJUSTED
     Route: 061
     Dates: start: 20080125, end: 20080131
  11. KETOPROFEN. [Concomitant]
     Active Substance: KETOPROFEN
     Dosage: FORM RPTD AS TAPE; DOSE ADJUSTED; DRUG NAME RPTD AS MILTAX
     Route: 061
     Dates: start: 20061012, end: 20080214
  12. VITAMIN B2 [Concomitant]
     Active Substance: RIBOFLAVIN
     Indication: PROPHYLAXIS
     Dosage: DOSAGE IS UNCERTAIN.
     Route: 065
     Dates: end: 20080214
  13. METOCLOPRAMIDE. [Concomitant]
     Active Substance: METOCLOPRAMIDE
     Route: 041
     Dates: start: 20071227, end: 20071228
  14. KENALOG (JAPAN) [Concomitant]
     Dosage: ROUTE RPTD AS OROPHARINGEAL
     Route: 050
     Dates: start: 20080104, end: 20080201
  15. SELBEX [Concomitant]
     Active Substance: TEPRENONE
     Route: 048
     Dates: start: 20061114, end: 20080214
  16. ZANTAC [Concomitant]
     Active Substance: RANITIDINE HYDROCHLORIDE
     Route: 041
     Dates: start: 20071221, end: 20080208
  17. NASEA [Concomitant]
     Active Substance: RAMOSETRON HYDROCHLORIDE
     Route: 048
     Dates: start: 20071227, end: 20080207
  18. RINDERON V [Concomitant]
     Active Substance: BETAMETHASONE VALERATE
     Dosage: ROUTE RPTD AS INJECTABLE
     Route: 050
     Dates: start: 20071221, end: 20080122
  19. XYLOCAINE [Concomitant]
     Active Substance: LIDOCAINE HYDROCHLORIDE
     Dosage: DRUG NAME REPORTED AS: XYLOCAINE POLYAMP; ROUTE RPTD AS INJECTABLE
     Route: 050
     Dates: start: 20061130, end: 20080122
  20. SOLANAX [Concomitant]
     Active Substance: ALPRAZOLAM
     Route: 048
     Dates: start: 20071119, end: 20080214
  21. KYTRIL [Concomitant]
     Active Substance: GRANISETRON HYDROCHLORIDE
     Route: 041
     Dates: start: 20071221, end: 20080201
  22. NOVAMIN (JAPAN) [Concomitant]
     Route: 048
     Dates: start: 20080201, end: 20080205
  23. DOGMATYL [Concomitant]
     Active Substance: SULPIRIDE
     Route: 048
     Dates: start: 20071221, end: 20071225
  24. TRYPTANOL [Concomitant]
     Active Substance: AMITRIPTYLINE
     Route: 048
     Dates: start: 20071228, end: 20080214
  25. MYSLEE [Concomitant]
     Active Substance: ZOLPIDEM TARTRATE
     Dosage: TAKEN AS NEEDED
     Route: 048
     Dates: start: 20080118, end: 20080214
  26. ADETPHOS-L [Concomitant]
     Indication: PROPHYLAXIS
     Dosage: DOSAGE IS UNCERTAIN.
     Route: 065
     Dates: end: 20080214
  27. DEXART [Suspect]
     Active Substance: DEXAMETHASONE SODIUM PHOSPHATE
     Indication: PREMEDICATION
     Route: 041
     Dates: start: 20071221, end: 20080201
  28. PRAVASTATIN [Concomitant]
     Active Substance: PRAVASTATIN\PRAVASTATIN SODIUM
     Route: 048
     Dates: start: 20080214
  29. VOLTAREN [Concomitant]
     Active Substance: DICLOFENAC SODIUM
     Route: 054
     Dates: start: 20071221, end: 20071221
  30. NOVAMIN (JAPAN) [Concomitant]
     Route: 048
     Dates: start: 20071221, end: 20071225
  31. PURSENNID [Concomitant]
     Active Substance: SENNOSIDES A AND B
     Dosage: TAKEN AS NEEDED
     Route: 048
     Dates: start: 20080104, end: 20080212
  32. RINDERON V [Concomitant]
     Active Substance: BETAMETHASONE VALERATE
     Dosage: DOSAGE ADJUSTED
     Route: 061
     Dates: start: 20080118, end: 20080201
  33. LORCAM [Suspect]
     Active Substance: LORNOXICAM
     Indication: NEURALGIA
     Route: 048
     Dates: start: 20071119, end: 20080214
  34. RESTAMIN [Concomitant]
     Active Substance: DIPHENHYDRAMINE
     Route: 048
     Dates: start: 20071221, end: 20071221
  35. TRASTUZUMAB [Suspect]
     Active Substance: TRASTUZUMAB
     Dosage: DOSE DECREASED
     Route: 041
     Dates: start: 20071228, end: 20080201
  36. ROHYPNOL [Concomitant]
     Active Substance: FLUNITRAZEPAM
     Route: 048
     Dates: start: 20071119, end: 20080117
  37. DOGMATYL [Concomitant]
     Active Substance: SULPIRIDE
     Route: 048
     Dates: start: 20080201, end: 20080205
  38. MUCOSTA [Concomitant]
     Active Substance: REBAMIPIDE
     Route: 048
     Dates: start: 20080118, end: 20080214
  39. LIDOMEX [Concomitant]
     Active Substance: PREDNISOLONE VALERATE ACETATE
     Dosage: DOSE ADJUSTED
     Route: 061
     Dates: start: 20080104, end: 20080201
  40. WHITE PETROLATUM [Concomitant]
     Active Substance: PETROLATUM
     Dosage: DOSE ADJUSTED
     Route: 061
     Dates: start: 20080118, end: 20080201
  41. HIRUDOID LOTION [Concomitant]
     Route: 061
     Dates: start: 20080125, end: 20080201

REACTIONS (3)
  - Neutrophil count decreased [Recovered/Resolved]
  - Gastric ulcer haemorrhage [Recovered/Resolved]
  - Death [Fatal]

NARRATIVE: CASE EVENT DATE: 20071227
